FAERS Safety Report 8025621-9 (Version None)
Quarter: 2012Q1

REPORT INFORMATION
  Report Type: 
  Country: None (occurrence: None)
  Receive Date: 20120105
  Receipt Date: 20111228
  Transmission Date: 20120608
  Serious: No
  Sender: FDA-Public Use
  Company Number: KR-BAYER-2012-001168

PATIENT
  Age: 32 Year
  Sex: Male
  Weight: 91 kg

DRUGS (1)
  1. ALEVE (CAPLET) [Suspect]
     Dosage: TOOK 2 AT 0500, 1500 AND A SHORT TIME AGO
     Route: 048

REACTIONS (1)
  - NO ADVERSE EVENT [None]
